FAERS Safety Report 25096166 (Version 1)
Quarter: 2025Q1

REPORT INFORMATION
  Report Type: Spontaneous
  Country: US (occurrence: US)
  Receive Date: 20250319
  Receipt Date: 20250319
  Transmission Date: 20250409
  Serious: Yes (Other)
  Sender: ALCON
  Company Number: US-ALCON LABORATORIES-ALC2024US002186

PATIENT
  Age: 17 Year
  Sex: Female

DRUGS (4)
  1. GENTEAL TEARS (MILD) [Suspect]
     Active Substance: DEXTRAN 70\HYPROMELLOSE 2910 (4000 MPA.S)
     Indication: Eye irritation
     Route: 047
  2. GENTEAL TEARS (MILD) [Suspect]
     Active Substance: DEXTRAN 70\HYPROMELLOSE 2910 (4000 MPA.S)
     Indication: Vision blurred
  3. DEXTRAN\HYPROMELLOSES [Suspect]
     Active Substance: DEXTRAN\HYPROMELLOSES
     Indication: Eye irritation
     Route: 047
  4. DEXTRAN\HYPROMELLOSES [Suspect]
     Active Substance: DEXTRAN\HYPROMELLOSES
     Indication: Vision blurred

REACTIONS (2)
  - Keratopathy [Unknown]
  - Drug ineffective [Unknown]
